FAERS Safety Report 7251512-7 (Version None)
Quarter: 2011Q1

REPORT INFORMATION
  Report Type: 
  Country: None (occurrence: None)
  Receive Date: 20110128
  Receipt Date: 20110121
  Transmission Date: 20110831
  Serious: Yes (Other)
  Sender: FDA-Public Use
  Company Number: PHHO2011CH01514

PATIENT
  Sex: Female
  Weight: 53 kg

DRUGS (2)
  1. FTY [Suspect]
     Dosage: 0.5 MG, QD
     Route: 048
  2. FTY [Suspect]
     Indication: MULTIPLE SCLEROSIS
     Dosage: DOSE BLINDED
     Route: 048
     Dates: start: 20061101

REACTIONS (3)
  - BASAL CELL CARCINOMA [None]
  - SKIN NEOPLASM EXCISION [None]
  - SKIN LESION [None]
